FAERS Safety Report 17874549 (Version 1)
Quarter: 2020Q2

REPORT INFORMATION
  Report Type: Spontaneous
  Country: US (occurrence: US)
  Receive Date: 20200609
  Receipt Date: 20200609
  Transmission Date: 20200714
  Serious: No
  Sender: FDA-Public Use
  Company Number: US-JNJFOC-20200601701

PATIENT

DRUGS (1)
  1. ZYRTEC [Suspect]
     Active Substance: CETIRIZINE HYDROCHLORIDE
     Indication: EAR INFECTION
     Dosage: HALF TABLET OF A WHOLE
     Route: 065
     Dates: start: 20200401

REACTIONS (4)
  - Body temperature decreased [Unknown]
  - Product use in unapproved indication [Unknown]
  - Chills [Unknown]
  - Tremor [Unknown]
